FAERS Safety Report 9408730 (Version 2)
Quarter: 2013Q3

REPORT INFORMATION
  Report Type: Spontaneous
  Country: DK (occurrence: DK)
  Receive Date: 20130718
  Receipt Date: 20130816
  Transmission Date: 20140515
  Serious: Yes (Other)
  Sender: FDA-Public Use
  Company Number: DK-B.I. PHARMACEUTICALS,INC./RIDGEFIELD-2013-BI-21141YA

PATIENT
  Sex: Male

DRUGS (2)
  1. TAMSULOSINA [Suspect]
     Indication: BENIGN PROSTATIC HYPERPLASIA
  2. TAMSULOSINA [Suspect]
     Indication: LOWER URINARY TRACT SYMPTOMS

REACTIONS (2)
  - Lenticular injury [Recovered/Resolved]
  - Vitreous disorder [Recovered/Resolved]
